FAERS Safety Report 4917253-3 (Version None)
Quarter: 2006Q1

REPORT INFORMATION
  Report Type: 
  Country: None (occurrence: None)
  Receive Date: 20060221
  Receipt Date: 20050223
  Transmission Date: 20060701
  Serious: Yes (Hospitalization)
  Sender: FDA-Public Use
  Company Number: US-MERCK-0502USA03492

PATIENT
  Age: 50 Year
  Sex: Male
  Weight: 136 kg

DRUGS (6)
  1. VIOXX [Suspect]
     Indication: OSTEOARTHRITIS
     Route: 048
     Dates: start: 20010727, end: 20020701
  2. VIOXX [Suspect]
     Indication: ARTHRALGIA
     Route: 048
     Dates: start: 20010727, end: 20020701
  3. DIOVAN HCT [Concomitant]
     Indication: HYPERTENSION
     Route: 065
  4. ADALAT CC [Concomitant]
     Route: 065
  5. LASIX [Concomitant]
     Route: 065
  6. BEXTRA [Concomitant]
     Indication: ARTHRALGIA
     Route: 065

REACTIONS (5)
  - CEREBRAL INFARCTION [None]
  - CHEST PAIN [None]
  - DYSLIPIDAEMIA [None]
  - HYPERTENSIVE CRISIS [None]
  - XANTHOMA [None]
